FAERS Safety Report 6064907-4 (Version None)
Quarter: 2009Q1

REPORT INFORMATION
  Report Type: 
  Country: None (occurrence: None)
  Receive Date: 20090203
  Receipt Date: 20090203
  Transmission Date: 20090719
  Serious: No
  Sender: FDA-Public Use
  Company Number: None

PATIENT
  Age: 44 Year
  Sex: Male

DRUGS (2)
  1. FLUOXETINE HCL [Suspect]
     Indication: DEPRESSION
     Dosage: 40 MG TAKE 1 CAPSULE DAILY
     Dates: start: 20081201, end: 20090113
  2. BUPROPION HCL XL [Concomitant]

REACTIONS (1)
  - DRUG INEFFECTIVE [None]
